FAERS Safety Report 24204305 (Version 1)
Quarter: 2024Q3

REPORT INFORMATION
  Report Type: Spontaneous
  Country: US (occurrence: US)
  Receive Date: 20240813
  Receipt Date: 20240813
  Transmission Date: 20241017
  Serious: Yes (Other)
  Sender: HIKMA
  Company Number: US-Hikma Pharmaceuticals USA Inc.-US-H14001-19-04209

PATIENT
  Age: 9 Year
  Sex: Female

DRUGS (5)
  1. FLUCONAZOLE [Interacting]
     Active Substance: FLUCONAZOLE
     Indication: Meningitis coccidioides
     Dosage: UNKNOWN
     Route: 065
  2. FLUCONAZOLE [Interacting]
     Active Substance: FLUCONAZOLE
     Indication: Prophylaxis
  3. FLUCONAZOLE [Interacting]
     Active Substance: FLUCONAZOLE
     Indication: Respiratory disorder
  4. FLUTICASONE [Interacting]
     Active Substance: FLUTICASONE
     Indication: Respiratory disorder
     Dosage: 110 MICROGRAM, QD
     Route: 055
  5. FLUTICASONE [Interacting]
     Active Substance: FLUTICASONE
     Indication: Meningitis coccidioides
     Dosage: 220 MICROGRAM, BID
     Route: 055

REACTIONS (7)
  - Cushingoid [Recovered/Resolved]
  - Growth failure [Recovered/Resolved]
  - Bone density decreased [Recovered/Resolved]
  - Adrenal insufficiency [Recovered/Resolved]
  - Femur fracture [Unknown]
  - Adverse event [Unknown]
  - Drug interaction [Recovered/Resolved]
